FAERS Safety Report 7600580-9 (Version None)
Quarter: 2011Q3

REPORT INFORMATION
  Report Type: 
  Country: None (occurrence: None)
  Receive Date: 20110711
  Receipt Date: 20110706
  Transmission Date: 20111222
  Serious: Yes (Other)
  Sender: FDA-Public Use
  Company Number: BR-PFIZER INC-2011152502

PATIENT
  Age: 52 Year
  Sex: Female
  Weight: 75 kg

DRUGS (2)
  1. ESTRADERM [Concomitant]
     Indication: MENOPAUSE
     Dosage: UNK
  2. GEODON [Suspect]
     Indication: MOOD ALTERED
     Dosage: 40 MG, 1X/DAY
     Route: 048
     Dates: start: 20110621, end: 20110704

REACTIONS (2)
  - EUPHORIC MOOD [None]
  - DEPRESSED MOOD [None]
